FAERS Safety Report 6833594-7 (Version None)
Quarter: 2010Q3

REPORT INFORMATION
  Report Type: 
  Country: None (occurrence: None)
  Receive Date: 20100712
  Receipt Date: 20070329
  Transmission Date: 20110219
  Serious: No
  Sender: FDA-Public Use
  Company Number: US-PFIZER INC-2007027100

PATIENT
  Sex: Female
  Weight: 43.09 kg

DRUGS (10)
  1. CHANTIX [Suspect]
     Indication: SMOKING CESSATION THERAPY
     Dates: start: 20070321
  2. PAXIL [Concomitant]
  3. ALL OTHER THERAPEUTIC PRODUCTS [Concomitant]
  4. AMITRIPTYLINE HYDROCHLORIDE [Concomitant]
  5. IMITREX [Concomitant]
  6. HYDROCODONE BITARTRATE [Concomitant]
  7. CLARINEX [Concomitant]
  8. PSEUDOEPHEDRINE [Concomitant]
  9. PROGESTERONE [Concomitant]
     Route: 062
  10. DIAZEPAM [Concomitant]

REACTIONS (1)
  - NAUSEA [None]
